FAERS Safety Report 5430004-1 (Version None)
Quarter: 2007Q3

REPORT INFORMATION
  Report Type: 
  Country: None (occurrence: None)
  Receive Date: 20070829
  Receipt Date: 20070223
  Transmission Date: 20080115
  Serious: No
  Sender: FDA-Public Use
  Company Number: US-BOEHRINGER INGELHEIM PHARMACEUTICALS, INC.-2006-BP-07406BP

PATIENT
  Sex: Female

DRUGS (43)
  1. MIRAPEX [Suspect]
     Indication: RESTLESS LEGS SYNDROME
     Dates: start: 20000901, end: 20050801
  2. MAXZIDE [Concomitant]
     Route: 048
     Dates: start: 20040524
  3. ASTELIN [Concomitant]
     Indication: HYPERSENSITIVITY
     Route: 045
     Dates: start: 20050627
  4. ASTELIN [Concomitant]
     Indication: SINUSITIS
  5. XANAX [Concomitant]
     Indication: NERVOUSNESS
     Route: 048
     Dates: start: 19950201
  6. PREMARIN [Concomitant]
     Dates: start: 19990729
  7. NAPROXEN [Concomitant]
     Route: 048
     Dates: start: 20030122
  8. NEXIUM [Concomitant]
     Route: 048
     Dates: start: 20020422, end: 20040903
  9. RANITIDINE [Concomitant]
     Indication: HIATUS HERNIA
     Dates: start: 19991214
  10. PAXIL CR [Concomitant]
     Indication: DEPRESSION
     Route: 048
     Dates: start: 20020601
  11. ZOLOFT [Concomitant]
     Route: 048
     Dates: start: 20020128
  12. SINGULAIR [Concomitant]
     Route: 048
     Dates: start: 20021201
  13. ALLERGY INJECTIONS [Concomitant]
     Indication: ALLERGY PROPHYLAXIS
     Dates: start: 19981101
  14. PROVENTIL-HFA [Concomitant]
     Indication: PULMONARY CONGESTION
     Route: 055
     Dates: start: 20021201
  15. LEXAPRO [Concomitant]
     Indication: DEPRESSION
     Route: 048
     Dates: start: 20030301
  16. ALLEGRA [Concomitant]
     Indication: HYPERSENSITIVITY
     Route: 048
     Dates: start: 20010806
  17. EFFEXOR XR [Concomitant]
     Indication: DEPRESSION
     Route: 048
     Dates: start: 19981201
  18. KLONOPIN [Concomitant]
     Route: 048
     Dates: start: 19991214
  19. RITALIN [Concomitant]
     Indication: FATIGUE
     Route: 048
     Dates: start: 20001012
  20. FLUOXETINE [Concomitant]
     Route: 048
     Dates: start: 20060424
  21. VICODIN ESS [Concomitant]
     Route: 048
     Dates: start: 20020522
  22. ZANAFLEX [Concomitant]
     Indication: MUSCLE SPASMS
     Route: 048
     Dates: start: 20051222
  23. CYMBALTA [Concomitant]
     Route: 048
     Dates: start: 20060724
  24. BENICAR HCT [Concomitant]
     Dates: start: 20061207
  25. AMBIEN [Concomitant]
     Route: 048
     Dates: start: 20050707
  26. AMANTADINE HCL [Concomitant]
     Route: 048
     Dates: start: 20070209
  27. IBUPROFEN [Concomitant]
     Dates: start: 20000701
  28. CELEBREX [Concomitant]
     Indication: ARTHRITIS
     Dates: start: 19990601
  29. ABILIFY [Concomitant]
     Route: 048
     Dates: start: 20051114
  30. ADVAIR DISKUS 100/50 [Concomitant]
     Indication: HYPERSENSITIVITY
     Dates: start: 20010806
  31. WELLBUTRIN XL [Concomitant]
     Indication: DEPRESSION
     Dates: start: 20040526, end: 20050309
  32. ASPIRIN [Concomitant]
     Indication: UNEVALUABLE EVENT
     Route: 048
     Dates: start: 20020201
  33. AVONEX [Concomitant]
     Indication: MULTIPLE SCLEROSIS
     Route: 030
     Dates: start: 20020401
  34. DETROL LA [Concomitant]
     Dates: start: 20010504
  35. LUCIDEX [Concomitant]
     Dates: start: 20030301
  36. BENADRYL [Concomitant]
     Dates: start: 20020715
  37. PRILOSEC [Concomitant]
     Indication: GASTROOESOPHAGEAL REFLUX DISEASE
     Dates: start: 20040526
  38. LIDODERM [Concomitant]
     Indication: BACK PAIN
     Route: 061
     Dates: start: 20060222
  39. LOVENOX [Concomitant]
     Dates: start: 20061012
  40. BETASERON [Concomitant]
     Dates: start: 20061207
  41. SEREVENT [Concomitant]
     Route: 055
     Dates: start: 20010518
  42. MAXAIR [Concomitant]
     Dates: start: 20020101
  43. PANMIST LA [Concomitant]
     Route: 048

REACTIONS (5)
  - DEPRESSIVE SYMPTOM [None]
  - HYPERPHAGIA [None]
  - OBSESSIVE-COMPULSIVE DISORDER [None]
  - PATHOLOGICAL GAMBLING [None]
  - WEIGHT INCREASED [None]
